FAERS Safety Report 9855755 (Version 1)
Quarter: 2014Q1

REPORT INFORMATION
  Report Type: Report from Study
  Country: US (occurrence: US)
  Receive Date: 20140130
  Receipt Date: 20140130
  Transmission Date: 20141002
  Serious: Yes (Other)
  Sender: FDA-Public Use
  Company Number: PHEH2014US001745

PATIENT
  Sex: Female

DRUGS (1)
  1. FEMARA [Suspect]
     Dosage: UNK UKN, UNK
     Dates: start: 199905, end: 201106

REACTIONS (1)
  - Disease progression [Unknown]
